FAERS Safety Report 25606082 (Version 1)
Quarter: 2025Q3

REPORT INFORMATION
  Report Type: Spontaneous
  Country: BR (occurrence: BR)
  Receive Date: 20250725
  Receipt Date: 20250725
  Transmission Date: 20251020
  Serious: Yes (Hospitalization, Other)
  Sender: MERZ
  Company Number: BR-ACORDA THERAPEUTICS IRELAND LIMITED-ACO_178488_2025

PATIENT

DRUGS (2)
  1. DALFAMPRIDINE [Suspect]
     Active Substance: DALFAMPRIDINE
     Indication: Off label use
     Dosage: 10 MILLIGRAM, Q12H
     Route: 048
     Dates: start: 2021
  2. TECFIDERA [Suspect]
     Active Substance: DIMETHYL FUMARATE
     Indication: Secondary progressive multiple sclerosis
     Dosage: 240 MILLIGRAM, Q12H
     Route: 048

REACTIONS (8)
  - Multiple sclerosis [Not Recovered/Not Resolved]
  - Hemiplegia [Not Recovered/Not Resolved]
  - Decubitus ulcer [Not Recovered/Not Resolved]
  - Speech disorder [Not Recovered/Not Resolved]
  - General physical condition abnormal [Unknown]
  - Hypersensitivity [Unknown]
  - Product dose omission issue [Not Recovered/Not Resolved]
  - Product distribution issue [Not Recovered/Not Resolved]

NARRATIVE: CASE EVENT DATE: 20250701
